FAERS Safety Report 10233247 (Version 2)
Quarter: 2014Q3

REPORT INFORMATION
  Report Type: Spontaneous
  Country: US (occurrence: US)
  Receive Date: 20140612
  Receipt Date: 20140815
  Transmission Date: 20150326
  Serious: Yes (Life-Threatening, Hospitalization, Disabling, Other)
  Sender: FDA-Public Use
  Company Number: US-BAYER-2014-086257

PATIENT
  Age: 31 Year
  Sex: Female
  Weight: 79.82 kg

DRUGS (5)
  1. MIRENA [Suspect]
     Active Substance: LEVONORGESTREL
     Indication: CONTRACEPTION
     Dosage: 20 MCG/24HR, CONT
     Route: 015
     Dates: start: 200804, end: 20130424
  2. KEFLEX [Concomitant]
     Active Substance: CEPHALEXIN
  3. DOXYCYCLINE. [Concomitant]
     Active Substance: DOXYCYCLINE
  4. ROCEPHIN [Concomitant]
     Active Substance: CEFTRIAXONE SODIUM
  5. PERCOCET [Concomitant]
     Active Substance: ACETAMINOPHEN\OXYCODONE HYDROCHLORIDE

REACTIONS (17)
  - Pelvic pain [Recovered/Resolved]
  - Anxiety [None]
  - Device dislocation [Recovered/Resolved]
  - Menorrhagia [None]
  - Fatigue [None]
  - Off label use [None]
  - Abortion spontaneous [None]
  - Drug ineffective [None]
  - Injury [Recovered/Resolved]
  - Anhedonia [None]
  - Nausea [None]
  - Pregnancy with contraceptive device [None]
  - Emotional distress [None]
  - Uterine perforation [Recovered/Resolved]
  - Abdominal pain lower [Recovered/Resolved]
  - Balance disorder [None]
  - General physical health deterioration [Recovered/Resolved]

NARRATIVE: CASE EVENT DATE: 2010
